FAERS Safety Report 24108346 (Version 1)
Quarter: 2024Q3

REPORT INFORMATION
  Report Type: Spontaneous
  Country: US (occurrence: US)
  Receive Date: 20240718
  Receipt Date: 20240718
  Transmission Date: 20241017
  Serious: No
  Sender: AVERITAS
  Company Number: US-GRUNENTHAL-2024-122391

PATIENT
  Age: 69 Year
  Sex: Male

DRUGS (1)
  1. QUTENZA [Suspect]
     Active Substance: CAPSAICIN
     Indication: Neuropathy peripheral
     Dosage: 4 DOSAGE FORM, ONCE
     Route: 061
     Dates: start: 20240628, end: 20240628

REACTIONS (3)
  - Application site pain [Unknown]
  - Product use issue [Unknown]
  - Application site erythema [Unknown]
